FAERS Safety Report 6014340-6 (Version None)
Quarter: 2008Q4

REPORT INFORMATION
  Report Type: 
  Country: None (occurrence: None)
  Receive Date: 20081219
  Receipt Date: 20080512
  Transmission Date: 20090506
  Serious: No
  Sender: FDA-Public Use
  Company Number: A0724339A

PATIENT
  Age: 58 Year
  Sex: Male
  Weight: 81.8 kg

DRUGS (2)
  1. AVODART [Suspect]
     Indication: BENIGN PROSTATIC HYPERPLASIA
     Dosage: .5MG PER DAY
     Route: 048
  2. TESTOSTERONE INJECTION [Concomitant]

REACTIONS (1)
  - FATIGUE [None]
